FAERS Safety Report 7312247-5 (Version None)
Quarter: 2011Q1

REPORT INFORMATION
  Report Type: 
  Country: None (occurrence: None)
  Receive Date: 20110224
  Receipt Date: 20110218
  Transmission Date: 20110831
  Serious: Yes (Death)
  Sender: FDA-Public Use
  Company Number: A0914435A

PATIENT
  Age: 54 Year
  Sex: Female

DRUGS (2)
  1. TYKERB [Suspect]
     Indication: BREAST CANCER
     Route: 048
     Dates: start: 20100322, end: 20110218
  2. XELODA [Concomitant]

REACTIONS (2)
  - BREAST CANCER METASTATIC [None]
  - PRODUCT QUALITY ISSUE [None]
